FAERS Safety Report 9819515 (Version 2)
Quarter: 2014Q1

REPORT INFORMATION
  Report Type: Spontaneous
  Country: JP (occurrence: JP)
  Receive Date: 20140115
  Receipt Date: 20140219
  Transmission Date: 20141002
  Serious: Yes (Life-Threatening, Hospitalization, Other)
  Sender: FDA-Public Use
  Company Number: JP-PFIZER INC-2014008385

PATIENT
  Age: 62 Year
  Sex: Female
  Weight: 57.4 kg

DRUGS (8)
  1. ZITHROMAC [Suspect]
     Indication: TOOTHACHE
     Dosage: 500 MG, 2X/DAY
     Route: 048
     Dates: start: 20130410, end: 20130412
  2. ZITHROMAC [Suspect]
     Indication: DENTAL CARIES
  3. PREMARIN [Suspect]
     Dosage: 0.625 MG, 1X/DAY
     Route: 048
  4. PROGESTON [Suspect]
     Dosage: 2.5 MG, 1X/DAY
     Route: 048
  5. HIBON [Concomitant]
  6. CLARITIN [Concomitant]
     Dosage: UNK
  7. DEPAS [Concomitant]
     Dosage: UNK
  8. LENDORMIN [Concomitant]
     Dosage: UNK

REACTIONS (3)
  - Thrombocytopenic purpura [Recovering/Resolving]
  - Haematuria [Unknown]
  - Headache [Unknown]
